FAERS Safety Report 12558384 (Version 2)
Quarter: 2016Q3

REPORT INFORMATION
  Report Type: Spontaneous
  Country: US (occurrence: US)
  Receive Date: 20160714
  Receipt Date: 20160810
  Transmission Date: 20161109
  Serious: Yes (Other)
  Sender: FDA-Public Use
  Company Number: PHEH2016US017392

PATIENT
  Age: 66 Year
  Sex: Male
  Weight: 102.5 kg

DRUGS (7)
  1. IPILIMUMAB [Suspect]
     Active Substance: IPILIMUMAB
     Indication: BRAF GENE MUTATION
     Dosage: 10 UNK, UNK
     Route: 042
     Dates: start: 20160201, end: 20160201
  2. IPILIMUMAB [Suspect]
     Active Substance: IPILIMUMAB
     Dosage: 10 MG/KG, QW3
     Route: 042
     Dates: start: 20160315, end: 20160315
  3. MULTIVITAMINS [Concomitant]
     Active Substance: VITAMINS
     Indication: PRODUCT USED FOR UNKNOWN INDICATION
     Route: 065
  4. TAFINLAR [Suspect]
     Active Substance: DABRAFENIB MESYLATE
     Indication: MALIGNANT MELANOMA
     Route: 048
  5. MEKINIST [Suspect]
     Active Substance: TRAMETINIB DIMETHYL SULFOXIDE
     Indication: MALIGNANT MELANOMA
     Dosage: UNK
     Route: 048
  6. IPILIMUMAB [Suspect]
     Active Substance: IPILIMUMAB
     Indication: METASTATIC MALIGNANT MELANOMA
     Dosage: 10 MG/KG, QW3
     Route: 042
     Dates: start: 20160111, end: 20160111
  7. IPILIMUMAB [Suspect]
     Active Substance: IPILIMUMAB
     Dosage: 10 UNK, UNK
     Route: 042
     Dates: start: 20160222, end: 20160222

REACTIONS (7)
  - Cough [Unknown]
  - Upper respiratory tract infection [Unknown]
  - Influenza [Unknown]
  - Dyspnoea exertional [Unknown]
  - Pneumonitis [Recovered/Resolved]
  - Squamous cell carcinoma [Unknown]
  - Biliary hamartoma [Unknown]

NARRATIVE: CASE EVENT DATE: 20160323
